FAERS Safety Report 4966356-6 (Version None)
Quarter: 2006Q2

REPORT INFORMATION
  Report Type: 
  Country: None (occurrence: None)
  Receive Date: 20060407
  Receipt Date: 20060329
  Transmission Date: 20061013
  Serious: Yes (Death)
  Sender: FDA-Public Use
  Company Number: CZ-JNJFOC-20050200472

PATIENT
  Sex: Male

DRUGS (8)
  1. REMICADE [Suspect]
     Route: 042
  2. REMICADE [Suspect]
     Route: 042
  3. REMICADE [Suspect]
     Indication: RHEUMATOID ARTHRITIS
     Route: 042
  4. PREDNISON [Concomitant]
  5. PREDNISON [Concomitant]
  6. METHOTREXATE [Concomitant]
  7. XATRAL [Concomitant]
  8. MONOFLAM [Concomitant]

REACTIONS (4)
  - EMBOLISM [None]
  - PNEUMONIA [None]
  - SUDDEN DEATH [None]
  - TUBERCULOSIS [None]
